FAERS Safety Report 8723037 (Version 3)
Quarter: 2012Q4

REPORT INFORMATION
  Report Type: 
  Country: US (occurrence: US)
  Receive Date: 20120814
  Receipt Date: 20121025
  Transmission Date: 20130627
  Serious: Yes (Other)
  Sender: FDA-Public Use
  Company Number: PHEH2012US015666

PATIENT
  Age: 40 Year
  Sex: Female
  Weight: 119.27 kg

DRUGS (14)
  1. GILENYA [Suspect]
     Dosage: 0.5 mg, QD
     Route: 048
     Dates: start: 20120806
  2. FLUOXETINE [Concomitant]
     Dosage: 40 mg, QD
     Route: 048
  3. VITAMIN D [Concomitant]
     Dosage: 50000 IU, QW
     Route: 048
  4. CRESTOR [Concomitant]
     Dosage: 10 mg, QD
     Route: 048
  5. BACLOFEN [Concomitant]
     Dosage: 10 mg, TID
     Route: 048
  6. FAMOTIDINE [Concomitant]
     Dosage: 40 mg, BID
     Route: 048
  7. AMITRIPTYLINE [Concomitant]
     Dosage: UNK UKN, QHS
     Route: 048
  8. OXYBUTYNIN [Concomitant]
     Dosage: 5 mg, QD
     Route: 048
  9. ADVIL [Concomitant]
     Dosage: UNK UKN, UNK
  10. FLUTICASONE [Concomitant]
     Dosage: UNK UKN, UNK
     Route: 045
  11. VOLTAREN [Concomitant]
     Dosage: UNK UKN, QID
  12. VITAMINS [Concomitant]
     Dosage: UNK UKN, UNK
  13. CALCIUM [Concomitant]
     Dosage: UNK UKN, UNK
  14. B COMPLEX [Concomitant]
     Dosage: UNK UKN, UNK

REACTIONS (6)
  - Chest pain [Recovered/Resolved]
  - Menstruation irregular [Unknown]
  - Feeling cold [Recovering/Resolving]
  - Oxygen saturation decreased [Recovering/Resolving]
  - Chest discomfort [Recovering/Resolving]
  - Blood pressure decreased [Recovering/Resolving]
